FAERS Safety Report 21323143 (Version 1)
Quarter: 2022Q3

REPORT INFORMATION
  Report Type: Spontaneous
  Country: DK (occurrence: DK)
  Receive Date: 20220912
  Receipt Date: 20220912
  Transmission Date: 20221027
  Serious: Yes (Other)
  Sender: FDA-Public Use
  Company Number: DK-MYLANLABS-2022M1092476

PATIENT
  Age: 10 Year
  Sex: Male

DRUGS (6)
  1. CISPLATIN [Suspect]
     Active Substance: CISPLATIN
     Indication: Osteosarcoma
     Dosage: UNK (NEOADJUVANT CHEMOTHERAPY)
     Route: 065
     Dates: start: 201205
  2. CISPLATIN [Suspect]
     Active Substance: CISPLATIN
     Dosage: UNK (NEOADJUVANT CHEMOTHERAPY)
     Route: 065
     Dates: end: 201301
  3. METHOTREXATE [Suspect]
     Active Substance: METHOTREXATE
     Indication: Osteosarcoma
     Dosage: UNK (NEOADJUVANT CHEMOTHERAPY)
     Route: 065
     Dates: start: 201205
  4. METHOTREXATE [Suspect]
     Active Substance: METHOTREXATE
     Dosage: UNK (NEOADJUVANT CHEMOTHERAPY)
     Route: 065
     Dates: end: 201301
  5. DOXORUBICIN [Suspect]
     Active Substance: DOXORUBICIN
     Indication: Osteosarcoma
     Dosage: UNK (NEOADJUVANT CHEMOTHERAPY)
     Route: 065
     Dates: start: 201205
  6. DOXORUBICIN [Suspect]
     Active Substance: DOXORUBICIN
     Dosage: UNK (NEOADJUVANT CHEMOTHERAPY)
     Route: 065
     Dates: end: 201301

REACTIONS (3)
  - Neutropenia [Unknown]
  - Stomatitis [Unknown]
  - Haemoglobin decreased [Unknown]

NARRATIVE: CASE EVENT DATE: 20120101
